FAERS Safety Report 15157393 (Version 1)
Quarter: 2018Q3

REPORT INFORMATION
  Report Type: Spontaneous
  Country: US (occurrence: US)
  Receive Date: 20180718
  Receipt Date: 20180718
  Transmission Date: 20181010
  Serious: No
  Sender: FDA-Public Use
  Company Number: US-SHIRE-US201826356

PATIENT
  Sex: Female
  Weight: 55.78 kg

DRUGS (1)
  1. XIIDRA [Suspect]
     Active Substance: LIFITEGRAST
     Indication: DRY EYE
     Dosage: 1 GTT, 2X/DAY:BID IN BOTH EYES
     Route: 047
     Dates: end: 20180618

REACTIONS (1)
  - Instillation site erythema [Recovered/Resolved]
